FAERS Safety Report 8476526-0 (Version None)
Quarter: 2012Q2

REPORT INFORMATION
  Report Type: 
  Country: None (occurrence: None)
  Receive Date: 20120628
  Receipt Date: 20120615
  Transmission Date: 20120825
  Serious: Yes (Other)
  Sender: FDA-Public Use
  Company Number: DE-MYLANLABS-2012S1012378

PATIENT
  Sex: Male

DRUGS (1)
  1. AMITRIPTYLINE HCL [Suspect]
     Indication: TENSION HEADACHE
     Route: 048

REACTIONS (2)
  - VERTIGO [None]
  - HEART RATE INCREASED [None]
